FAERS Safety Report 4933654-1 (Version None)
Quarter: 2006Q1

REPORT INFORMATION
  Report Type: 
  Country: None (occurrence: None)
  Receive Date: 20060306
  Receipt Date: 20060118
  Transmission Date: 20060701
  Serious: Yes (Disabling)
  Sender: FDA-Public Use
  Company Number: IE-BRISTOL-MYERS SQUIBB COMPANY-13253968

PATIENT
  Age: 61 Year
  Sex: Female
  Weight: 90 kg

DRUGS (7)
  1. TAXOL [Suspect]
     Indication: BREAST CANCER
     Route: 042
     Dates: start: 20051103, end: 20051215
  2. ADRIAMYCIN PFS [Concomitant]
     Indication: BREAST CANCER
     Route: 042
     Dates: start: 20050908, end: 20051020
  3. CYCLOPHOSPHAMIDE [Concomitant]
     Indication: BREAST CANCER
     Route: 042
     Dates: start: 20050908, end: 20051020
  4. BETALOC [Concomitant]
     Indication: HYPERTENSION
     Route: 048
  5. CELEBREX [Concomitant]
     Indication: ARTHRITIS
     Route: 048
  6. DIFLUCAN [Concomitant]
     Indication: STOMATITIS
     Route: 048
     Dates: start: 20050919, end: 20051201
  7. VALTREX [Concomitant]
     Route: 048
     Dates: start: 20050919, end: 20051201

REACTIONS (5)
  - ERYTHEMA [None]
  - NAIL DISORDER [None]
  - PAIN IN EXTREMITY [None]
  - SKIN CHAPPED [None]
  - SKIN EXFOLIATION [None]
